FAERS Safety Report 24584501 (Version 1)
Quarter: 2024Q4

REPORT INFORMATION
  Report Type: Spontaneous
  Country: US (occurrence: US)
  Receive Date: 20241106
  Receipt Date: 20241106
  Transmission Date: 20250114
  Serious: No
  Sender: MILLICENT HOLDINGS
  Company Number: US-Millicent Holdings Ltd.-MILL20241228

PATIENT
  Age: 77 Year
  Sex: Female

DRUGS (3)
  1. FEMRING [Suspect]
     Active Substance: ESTRADIOL ACETATE
     Indication: Bone disorder
     Dosage: 0.05 MG/DAY
     Route: 067
     Dates: start: 20241001
  2. FEMRING [Suspect]
     Active Substance: ESTRADIOL ACETATE
     Indication: Arthritis
     Dosage: 0.05 MG/DAY
     Route: 067
  3. FEMRING [Suspect]
     Active Substance: ESTRADIOL ACETATE
     Indication: Menopausal symptoms

REACTIONS (5)
  - Therapeutic product effect decreased [Not Recovered/Not Resolved]
  - Bone disorder [Not Recovered/Not Resolved]
  - Arthritis [Not Recovered/Not Resolved]
  - Menopausal symptoms [Not Recovered/Not Resolved]
  - Product use in unapproved indication [None]

NARRATIVE: CASE EVENT DATE: 20241001
